FAERS Safety Report 13957970 (Version 1)
Quarter: 2017Q3

REPORT INFORMATION
  Report Type: Spontaneous
  Country: US (occurrence: US)
  Receive Date: 20170912
  Receipt Date: 20170912
  Transmission Date: 20171128
  Serious: Yes (Hospitalization, Other)
  Sender: FDA-Public Use
  Company Number: US-JNJFOC-20170829163

PATIENT

DRUGS (5)
  1. CHLORPHENIRAMINE. [Suspect]
     Active Substance: CHLORPHENIRAMINE
     Indication: PRODUCT USED FOR UNKNOWN INDICATION
     Route: 048
  2. ACETAMINOPHEN. [Suspect]
     Active Substance: ACETAMINOPHEN
     Route: 048
  3. ACETAMINOPHEN. [Suspect]
     Active Substance: ACETAMINOPHEN
     Indication: PRODUCT USED FOR UNKNOWN INDICATION
     Route: 048
  4. ALCOHOL. [Suspect]
     Active Substance: ALCOHOL
     Indication: PRODUCT USED FOR UNKNOWN INDICATION
     Route: 048
  5. DEXTROMETHORPHAN [Suspect]
     Active Substance: DEXTROMETHORPHAN
     Indication: PRODUCT USED FOR UNKNOWN INDICATION
     Route: 048

REACTIONS (12)
  - Hyperreflexia [Unknown]
  - Drug abuse [Unknown]
  - Drug administration error [Unknown]
  - Serotonin syndrome [Unknown]
  - Anticholinergic syndrome [Unknown]
  - Delirium [Unknown]
  - Intentional self-injury [Unknown]
  - Accidental exposure to product [Unknown]
  - Clonus [Unknown]
  - Substance-induced psychotic disorder [Unknown]
  - Depressed level of consciousness [Unknown]
  - Agitation [Unknown]
